FAERS Safety Report 13482167 (Version 5)
Quarter: 2018Q4

REPORT INFORMATION
  Report Type: Report from Study
  Country: JP (occurrence: JP)
  Receive Date: 20170426
  Receipt Date: 20181227
  Transmission Date: 20190204
  Serious: Yes (Hospitalization, Other)
  Sender: FDA-Public Use
  Company Number: JP-ALXN-A201704008AA

PATIENT
  Age: 88 Year
  Sex: Male
  Weight: 54 kg

DRUGS (14)
  1. SOLIRIS [Suspect]
     Active Substance: ECULIZUMAB
     Dosage: 900 MG, Q2W
     Route: 042
     Dates: start: 20160707, end: 20161109
  2. ENDOXAN                            /00021101/ [Concomitant]
     Active Substance: CYCLOPHOSPHAMIDE
     Indication: PAROXYSMAL NOCTURNAL HAEMOGLOBINURIA
     Dosage: 50 MG, DAILY
     Route: 065
     Dates: start: 20140611, end: 20140925
  3. PREDONINE [Concomitant]
     Active Substance: PREDNISOLONE
     Dosage: 2.5 MG, DAILY
     Route: 065
     Dates: start: 20180517
  4. SOLIRIS [Suspect]
     Active Substance: ECULIZUMAB
     Dosage: 900 MG, Q3W
     Route: 042
     Dates: start: 20160616, end: 20160707
  5. SOLIRIS [Suspect]
     Active Substance: ECULIZUMAB
     Dosage: 900 MG, Q3W
     Route: 042
     Dates: start: 20141218, end: 20150108
  6. PREDONINE [Concomitant]
     Active Substance: PREDNISOLONE
     Indication: PAROXYSMAL NOCTURNAL HAEMOGLOBINURIA
     Dosage: 5 MG, DAILY
     Route: 065
     Dates: start: 20151022, end: 20180516
  7. SOLIRIS [Suspect]
     Active Substance: ECULIZUMAB
     Dosage: 900 MG, Q3W
     Route: 042
     Dates: start: 20161109
  8. SOLIRIS [Suspect]
     Active Substance: ECULIZUMAB
     Dosage: 900 MG, UNK
     Route: 042
     Dates: start: 20170405
  9. PRIDOL                             /00049602/ [Concomitant]
     Indication: PAROXYSMAL NOCTURNAL HAEMOGLOBINURIA
     Dosage: 80 MG, DAILY
     Route: 065
     Dates: start: 20140902, end: 20140928
  10. PRIDOL                             /00049602/ [Concomitant]
     Dosage: 40 MG, DAILY
     Route: 065
     Dates: start: 20140929, end: 20141003
  11. SOLIRIS [Suspect]
     Active Substance: ECULIZUMAB
     Indication: PAROXYSMAL NOCTURNAL HAEMOGLOBINURIA
     Dosage: 600 MG, QW
     Route: 042
     Dates: start: 20140925, end: 20141016
  12. SOLIRIS [Suspect]
     Active Substance: ECULIZUMAB
     Dosage: 900 MG, Q2W
     Route: 042
     Dates: start: 20141106, end: 20141218
  13. SOLIRIS [Suspect]
     Active Substance: ECULIZUMAB
     Dosage: 900 MG, Q2W
     Route: 042
     Dates: start: 20150108
  14. SOLIRIS [Suspect]
     Active Substance: ECULIZUMAB
     Dosage: 900 MG, Q2W
     Route: 042
     Dates: start: 20160408, end: 20160616

REACTIONS (5)
  - Dyspnoea [Recovering/Resolving]
  - Decreased appetite [Recovering/Resolving]
  - Staphylococcal bacteraemia [Recovering/Resolving]
  - Inappropriate schedule of product administration [Unknown]
  - Anaemia [Recovering/Resolving]

NARRATIVE: CASE EVENT DATE: 20160616
